FAERS Safety Report 23474992 (Version 1)
Quarter: 2024Q1

REPORT INFORMATION
  Report Type: Report from Study
  Country: US (occurrence: US)
  Receive Date: 20240204
  Receipt Date: 20240204
  Transmission Date: 20240410
  Serious: Yes (Other)
  Sender: FDA-Public Use
  Company Number: US-EXELIXIS-CABO-23068919

PATIENT
  Sex: Male

DRUGS (20)
  1. CABOMETYX [Suspect]
     Active Substance: CABOZANTINIB S-MALATE
     Indication: Hepatocellular carcinoma
     Dosage: 60 MG
     Dates: start: 20230815, end: 20230926
  2. CABOMETYX [Suspect]
     Active Substance: CABOZANTINIB S-MALATE
     Dosage: 20 MG, QD
     Dates: start: 20231022
  3. APIXABAN [Concomitant]
     Active Substance: APIXABAN
  4. ATORVASTATIN [Concomitant]
     Active Substance: ATORVASTATIN
  5. VITAMIN B COMPLEX [Concomitant]
     Active Substance: CYANOCOBALAMIN\DEXPANTHENOL\NIACINAMIDE\PYRIDOXINE HYDROCHLORIDE\RIBOFLAVIN 5^-PHOSPHATE SODIUM\THIA
  6. CELEBREX [Concomitant]
     Active Substance: CELECOXIB
  7. ZYRTEC [Concomitant]
     Active Substance: CETIRIZINE HYDROCHLORIDE
  8. CALCIUM CITRATE\VITAMIN D [Concomitant]
     Active Substance: CALCIUM CITRATE\VITAMIN D
  9. DICLOFENAC [Concomitant]
     Active Substance: DICLOFENAC
  10. FLONASE [Concomitant]
     Active Substance: FLUTICASONE PROPIONATE
  11. LASIX [Concomitant]
     Active Substance: FUROSEMIDE
  12. GABAPENTIN [Concomitant]
     Active Substance: GABAPENTIN
  13. SYNTHROID [Concomitant]
     Active Substance: LEVOTHYROXINE SODIUM
  14. LISINOPRIL [Concomitant]
     Active Substance: LISINOPRIL
  15. LOPRESSOR [Concomitant]
     Active Substance: METOPROLOL TARTRATE
  16. VITAMINS [Concomitant]
     Active Substance: VITAMINS
  17. MIRALAX [Concomitant]
     Active Substance: POLYETHYLENE GLYCOL 3350
  18. FLOMAX [Concomitant]
     Active Substance: TAMSULOSIN HYDROCHLORIDE
  19. TRAMADOL [Concomitant]
     Active Substance: TRAMADOL\TRAMADOL HYDROCHLORIDE
  20. VITAMIN E [Concomitant]
     Active Substance: .ALPHA.-TOCOPHEROL

REACTIONS (15)
  - Haemorrhage [Recovered/Resolved]
  - Osteomyelitis [Unknown]
  - Syncope [Unknown]
  - Blood pressure decreased [Unknown]
  - Blood pressure increased [Recovered/Resolved]
  - Stomatitis [Recovered/Resolved]
  - Arthralgia [Not Recovered/Not Resolved]
  - Diarrhoea [Not Recovered/Not Resolved]
  - Dehydration [Unknown]
  - Ageusia [Recovered/Resolved]
  - Genital ulceration [Recovered/Resolved]
  - Skin exfoliation [Recovered/Resolved]
  - Peripheral swelling [Unknown]
  - Alpha 1 foetoprotein decreased [Unknown]
  - Off label use [Unknown]
